FAERS Safety Report 14003216 (Version 1)
Quarter: 2017Q3

REPORT INFORMATION
  Report Type: Report from Study
  Country: US (occurrence: US)
  Receive Date: 20170922
  Receipt Date: 20170922
  Transmission Date: 20171128
  Serious: No
  Sender: FDA-Public Use
  Company Number: US-AMGEN-USASL2017132824

PATIENT
  Age: 54 Year
  Sex: Female

DRUGS (1)
  1. ENBREL [Suspect]
     Active Substance: ETANERCEPT
     Indication: RHEUMATOID ARTHRITIS
     Dosage: 50 MG, QWK
     Route: 065
     Dates: start: 20170801

REACTIONS (12)
  - Discomfort [Unknown]
  - Accidental exposure to product [Unknown]
  - Hypotonia [Unknown]
  - Injection site swelling [Unknown]
  - Drug dose omission [Unknown]
  - Underdose [Unknown]
  - Product storage error [Unknown]
  - Asthenia [Unknown]
  - Injection site bruising [Unknown]
  - Injection site erythema [Unknown]
  - Wrong technique in product usage process [Unknown]
  - Injection site haemorrhage [Unknown]

NARRATIVE: CASE EVENT DATE: 201708
